FAERS Safety Report 22097047 (Version 2)
Quarter: 2023Q1

REPORT INFORMATION
  Report Type: Spontaneous
  Country: US (occurrence: US)
  Receive Date: 20230315
  Receipt Date: 20230322
  Transmission Date: 20230418
  Serious: Yes (Hospitalization, Other)
  Sender: FDA-Public Use
  Company Number: US-RECKITT BENCKISER HEALTHCARE INT LIMITED-RB-081917-2023

PATIENT
  Age: 2 Year
  Sex: Male
  Weight: 14.06 kg

DRUGS (1)
  1. DELSYM [Suspect]
     Active Substance: DEXTROMETHORPHAN
     Indication: Product used for unknown indication
     Dosage: UNKNOWN
     Route: 048
     Dates: start: 20221031, end: 20221031

REACTIONS (20)
  - Unresponsive to stimuli [Recovered/Resolved]
  - Sinus tachycardia [Recovered/Resolved]
  - Nystagmus [Recovered/Resolved]
  - Slow response to stimuli [Recovered/Resolved]
  - Mental status changes [Recovered/Resolved]
  - Mydriasis [Recovered/Resolved]
  - Ataxia [Recovered/Resolved]
  - Stupor [Recovered/Resolved]
  - Drooling [Recovered/Resolved]
  - Dyskinesia [Recovered/Resolved]
  - Asthenia [Recovered/Resolved]
  - Staring [Recovered/Resolved]
  - Somnolence [Recovered/Resolved]
  - Sedation [Recovered/Resolved]
  - Toxicity to various agents [Recovered/Resolved]
  - Eye movement disorder [Recovering/Resolving]
  - Lethargy [Recovering/Resolving]
  - Product use issue [Recovered/Resolved]
  - Overdose [Recovered/Resolved]
  - Vomiting [Recovered/Resolved]

NARRATIVE: CASE EVENT DATE: 20221031
